FAERS Safety Report 14719597 (Version 2)
Quarter: 2018Q4

REPORT INFORMATION
  Report Type: Spontaneous
  Country: US (occurrence: US)
  Receive Date: 20180405
  Receipt Date: 20181115
  Transmission Date: 20190204
  Serious: No
  Sender: FDA-Public Use
  Company Number: US-PFIZER INC-2018138315

PATIENT
  Age: 65 Year
  Sex: Female

DRUGS (1)
  1. XELJANZ XR [Suspect]
     Active Substance: TOFACITINIB CITRATE
     Indication: RHEUMATOID ARTHRITIS
     Dosage: 11 MG, UNK
     Dates: start: 20171024

REACTIONS (3)
  - Skin disorder [Recovered/Resolved with Sequelae]
  - Gastrointestinal disorder [Unknown]
  - Skin irritation [Recovered/Resolved with Sequelae]

NARRATIVE: CASE EVENT DATE: 20171213
